FAERS Safety Report 5284888-0 (Version None)
Quarter: 2007Q1

REPORT INFORMATION
  Report Type: 
  Country: None (occurrence: None)
  Receive Date: 20061226
  Receipt Date: 20060824
  Transmission Date: 20070707
  Serious: Yes (Hospitalization, Disabling, Other)
  Sender: FDA-Public Use
  Company Number: WAES 0608USA05917

PATIENT
  Age: 79 Year
  Sex: Male

DRUGS (7)
  1. ZETIA [Suspect]
     Indication: BLOOD CHOLESTEROL
     Dosage: 10 MG/DAILY/PO
     Route: 048
     Dates: start: 20040801, end: 20060822
  2. COUMADIN [Concomitant]
  3. DIOVAN [Concomitant]
  4. GLUCOPHAGE XR [Concomitant]
  5. GLUCOTROL XL [Concomitant]
  6. PRAVACHOL [Concomitant]
  7. PREVACID [Concomitant]

REACTIONS (1)
  - MYALGIA [None]
